FAERS Safety Report 9239016 (Version 1)
Quarter: 2013Q2

REPORT INFORMATION
  Report Type: Spontaneous
  Country: US (occurrence: US)
  Receive Date: 20130418
  Receipt Date: 20130418
  Transmission Date: 20140414
  Serious: No
  Sender: FDA-Public Use
  Company Number: US-BAYER-2013-037315

PATIENT
  Age: 30 Year
  Sex: Female

DRUGS (2)
  1. MIRENA [Suspect]
     Indication: CONTRACEPTION
     Dosage: 20 MCG/24HR, CONT
     Route: 015
     Dates: start: 201003, end: 20130309
  2. VITAMINS [Concomitant]

REACTIONS (12)
  - Cold urticaria [None]
  - Swelling [None]
  - Erythema [None]
  - Unevaluable event [None]
  - Weight increased [None]
  - Weight decreased [Not Recovered/Not Resolved]
  - Asthenia [None]
  - Emotional disorder [None]
  - Mood altered [None]
  - Drug withdrawal headache [Not Recovered/Not Resolved]
  - Procedural pain [None]
  - Dyspareunia [None]
